FAERS Safety Report 20906846 (Version 1)
Quarter: 2022Q2

REPORT INFORMATION
  Report Type: Spontaneous
  Country: US (occurrence: US)
  Receive Date: 20220602
  Receipt Date: 20220602
  Transmission Date: 20220720
  Serious: No
  Sender: FDA-Public Use
  Company Number: US-TEVA-2022-US-2036816

PATIENT
  Age: 57 Year
  Sex: Female

DRUGS (4)
  1. DESVENLAFAXINE [Suspect]
     Active Substance: DESVENLAFAXINE
     Indication: Depression
     Route: 065
     Dates: start: 2022
  2. DESVENLAFAXINE [Suspect]
     Active Substance: DESVENLAFAXINE
     Route: 065
     Dates: start: 2022
  3. DESVENLAFAXINE [Suspect]
     Active Substance: DESVENLAFAXINE
     Route: 065
     Dates: start: 2022, end: 20220428
  4. XANAX [Concomitant]
     Active Substance: ALPRAZOLAM
     Route: 065

REACTIONS (8)
  - Drug withdrawal syndrome [Unknown]
  - Rash [Unknown]
  - Dry mouth [Unknown]
  - Blister [Unknown]
  - Nausea [Unknown]
  - Pruritus [Not Recovered/Not Resolved]
  - Urticaria [Unknown]
  - Scar [Unknown]

NARRATIVE: CASE EVENT DATE: 20220401
